FAERS Safety Report 9059868 (Version 2)
Quarter: 2013Q1

REPORT INFORMATION
  Report Type: Report from Study
  Country: US (occurrence: US)
  Receive Date: 20130212
  Receipt Date: 20130212
  Transmission Date: 20140127
  Serious: Yes (Hospitalization)
  Sender: FDA-Public Use
  Company Number: US-JNJFOC-20130204192

PATIENT
  Age: 8 None
  Sex: Female
  Weight: 22.6 kg

DRUGS (7)
  1. REMICADE [Suspect]
     Indication: INFLAMMATORY BOWEL DISEASE
     Route: 042
     Dates: start: 20120119
  2. 5-ASA [Concomitant]
     Route: 048
  3. MULTIVITAMINS WITH IRON [Concomitant]
  4. MIRALAX [Concomitant]
  5. CYPROHEPTADINE [Concomitant]
  6. MULTIVITAMINS WITH MINERALS [Concomitant]
  7. CALCIUM AND VITAMIN D [Concomitant]

REACTIONS (1)
  - Faecaloma [Recovered/Resolved]
